FAERS Safety Report 11591798 (Version 4)
Quarter: 2016Q1

REPORT INFORMATION
  Report Type: Report from Study
  Country: US (occurrence: US)
  Receive Date: 20151005
  Receipt Date: 20160118
  Transmission Date: 20160525
  Serious: No
  Sender: FDA-Public Use
  Company Number: US-AMGEN-USASL2015098511

PATIENT
  Age: 63 Year
  Sex: Male

DRUGS (1)
  1. ENBREL [Suspect]
     Active Substance: ETANERCEPT
     Indication: RHEUMATOID ARTHRITIS
     Dosage: 50 MG, ONCE A WEEK
     Route: 065
     Dates: start: 20150919

REACTIONS (8)
  - Productive cough [Unknown]
  - Nasal congestion [Recovered/Resolved]
  - Headache [Unknown]
  - Intervertebral disc protrusion [Unknown]
  - Paranasal sinus hypersecretion [Unknown]
  - Sinusitis [Not Recovered/Not Resolved]
  - Back injury [Unknown]
  - Nasal discharge discolouration [Unknown]

NARRATIVE: CASE EVENT DATE: 2015
